FAERS Safety Report 4434375-4 (Version None)
Quarter: 2004Q3

REPORT INFORMATION
  Report Type: 
  Country: None (occurrence: None)
  Receive Date: 20040726
  Receipt Date: 20040405
  Transmission Date: 20050211
  Serious: No
  Sender: FDA-Public Use
  Company Number: USA040464174

PATIENT
  Age: 59 Year
  Sex: Male

DRUGS (2)
  1. FORTEO [Suspect]
     Dates: start: 20040101, end: 20040402
  2. ACTONEL [Concomitant]

REACTIONS (4)
  - BACK PAIN [None]
  - HEADACHE [None]
  - MUSCULOSKELETAL STIFFNESS [None]
  - PAIN [None]
